FAERS Safety Report 7961773-4 (Version None)
Quarter: 2011Q4

REPORT INFORMATION
  Report Type: 
  Country: None (occurrence: None)
  Receive Date: 20111207
  Receipt Date: 20111129
  Transmission Date: 20120403
  Serious: Yes (Hospitalization, Other)
  Sender: FDA-Public Use
  Company Number: PHHY2011ES104676

PATIENT
  Age: 78 Year
  Sex: Male

DRUGS (11)
  1. CLOPIDOGREL [Interacting]
     Dosage: 75 MG, QD
     Route: 048
     Dates: start: 20080801, end: 20110604
  2. ACETYLSALICYLIC ACID SRT [Interacting]
     Dosage: 150 MG, QD
     Route: 048
     Dates: start: 20080801, end: 20110604
  3. AMIODARONE HCL [Interacting]
     Dosage: 200 MG, QD
     Route: 048
     Dates: start: 20101101, end: 20110604
  4. ISOSORBIDE MONONITRATE [Concomitant]
  5. SINTROM UNO [Suspect]
     Route: 048
     Dates: end: 20110604
  6. ATORVASTATIN [Interacting]
     Indication: HYPERLIPIDAEMIA
     Dosage: 40 MG, QD
     Route: 048
     Dates: end: 20110604
  7. INSULIN MIXTARD [Concomitant]
  8. HYDRAPRESS [Concomitant]
  9. BISOPROLOL FUMARATE [Concomitant]
     Dosage: 10 MG, UNK
  10. RANITIDINE [Concomitant]
  11. DUTASTERIDE/TAMSULOSIN HYDROCHLORIDE [Concomitant]

REACTIONS (14)
  - BLOOD PRESSURE INCREASED [None]
  - DRUG INTERACTION [None]
  - HEMIANOPIA [None]
  - AGITATION [None]
  - OCULOCEPHALOGYRIC REFLEX ABSENT [None]
  - DISORIENTATION [None]
  - FALL [None]
  - HEMIPARESIS [None]
  - CEREBRAL HAEMATOMA [None]
  - ASPIRATION BRONCHIAL [None]
  - CEREBRAL ATROPHY [None]
  - DYSARTHRIA [None]
  - HYPOACUSIS [None]
  - ATRIAL FIBRILLATION [None]
